FAERS Safety Report 20981748 (Version 1)
Quarter: 2022Q2

REPORT INFORMATION
  Report Type: Other
  Country: HK (occurrence: None)
  Receive Date: 20220620
  Receipt Date: 20220620
  Transmission Date: 20220721
  Serious: Yes (Other)
  Sender: FDA-Public Use
  Company Number: HK-ROCHE-3119903

PATIENT
  Age: 55 Year
  Sex: Male

DRUGS (3)
  1. TRASTUZUMAB [Suspect]
     Active Substance: TRASTUZUMAB
     Indication: Oesophageal adenocarcinoma
     Route: 065
     Dates: start: 202010, end: 202101
  2. CAPECITABINE [Suspect]
     Active Substance: CAPECITABINE
     Indication: Oesophageal adenocarcinoma
     Route: 065
     Dates: start: 202010, end: 202101
  3. CISPLATIN [Suspect]
     Active Substance: CISPLATIN
     Indication: Oesophageal adenocarcinoma
     Route: 065
     Dates: start: 202010, end: 202101

REACTIONS (3)
  - Neutropenia [Recovered/Resolved]
  - Drug intolerance [Unknown]
  - Decreased appetite [Recovered/Resolved]
